FAERS Safety Report 9759140 (Version 1)
Quarter: 2013Q4

REPORT INFORMATION
  Report Type: Spontaneous
  Country: ZA (occurrence: ZA)
  Receive Date: 20131216
  Receipt Date: 20131216
  Transmission Date: 20140711
  Serious: Yes (Hospitalization)
  Sender: FDA-Public Use
  Company Number: ZA-ASTELLAS-2013EU010926

PATIENT
  Sex: Male

DRUGS (1)
  1. PROGRAF [Suspect]
     Indication: TRANSPLANT
     Dosage: UNK
     Route: 065

REACTIONS (4)
  - Pancreatitis [Unknown]
  - Pancreatic cyst [Unknown]
  - Pleural effusion [Unknown]
  - Pancreatic abscess [Unknown]
